FAERS Safety Report 4899866-0 (Version None)
Quarter: 2006Q1

REPORT INFORMATION
  Report Type: 
  Country: None (occurrence: None)
  Receive Date: 20060118
  Receipt Date: 20050726
  Transmission Date: 20060701
  Serious: No
  Sender: FDA-Public Use
  Company Number: 2005001432

PATIENT
  Age: 73 Year
  Sex: Male

DRUGS (1)
  1. TARCEVA [Suspect]
     Indication: LUNG NEOPLASM MALIGNANT
     Dosage: 150 MG, ORAL
     Route: 048
     Dates: start: 20050720

REACTIONS (4)
  - DIARRHOEA [None]
  - ORAL PAIN [None]
  - PRURITUS [None]
  - RASH [None]
